FAERS Safety Report 6702849-9 (Version None)
Quarter: 2010Q2

REPORT INFORMATION
  Report Type: 
  Country: None (occurrence: None)
  Receive Date: 20100429
  Receipt Date: 20100429
  Transmission Date: 20101027
  Serious: Yes (Hospitalization)
  Sender: FDA-Public Use
  Company Number: None

PATIENT
  Age: 32 Year
  Sex: Female
  Weight: 115.6672 kg

DRUGS (1)
  1. OVCON-50 [Suspect]
     Indication: CONTRACEPTION
     Dosage: 1 TABLET DAILY PO
     Route: 048

REACTIONS (4)
  - ACTIVATED PARTIAL THROMBOPLASTIN TIME PROLONGED [None]
  - DEEP VEIN THROMBOSIS [None]
  - INTERNATIONAL NORMALISED RATIO DECREASED [None]
  - WHITE BLOOD CELL COUNT INCREASED [None]
